FAERS Safety Report 13370705 (Version 1)
Quarter: 2017Q1

REPORT INFORMATION
  Report Type: Spontaneous
  Country: CH (occurrence: CH)
  Receive Date: 20170324
  Receipt Date: 20170324
  Transmission Date: 20170429
  Serious: Yes (Life-Threatening, Hospitalization)
  Sender: FDA-Public Use
  Company Number: CH-BAYER-2017-050068

PATIENT
  Age: 72 Year
  Sex: Male

DRUGS (11)
  1. ASPIRIN CARDIO 100 MG [Suspect]
     Active Substance: ASPIRIN
     Dosage: 100 MG, QD
     Route: 048
     Dates: start: 20170104, end: 20170225
  2. TORASEMID [Suspect]
     Active Substance: TORSEMIDE
     Dosage: 5 MG, QD
     Route: 048
     Dates: start: 20170105, end: 20170225
  3. GALENIC /PIPERACILLIN/TAZOBACTAM [Concomitant]
     Active Substance: PIPERACILLIN SODIUM\TAZOBACTAM SODIUM
     Dosage: 4.5 G, TID
     Route: 042
     Dates: start: 20170226, end: 20170301
  4. MAGNESIOCARD [Concomitant]
     Active Substance: MAGNESIUM ASPARTATE HYDROCHLORIDE
     Dosage: 5 MG, BID
     Route: 048
     Dates: start: 201612, end: 20170225
  5. AMLODIPIN [Suspect]
     Active Substance: AMLODIPINE BESYLATE
     Dosage: 5 MG, QD
     Route: 048
     Dates: end: 20170225
  6. ZINAT [Concomitant]
     Active Substance: CEFUROXIME AXETIL
     Dosage: 500 MG, BID
     Route: 048
     Dates: start: 20170224, end: 20170224
  7. LEPONEX [Suspect]
     Active Substance: CLOZAPINE
     Indication: SCHIZOPHRENIA
     Dosage: 175 MG, QD
     Route: 048
     Dates: start: 20161207, end: 20170225
  8. ESCITALOPRAM [Concomitant]
     Active Substance: ESCITALOPRAM OXALATE
     Dosage: 10 MG, QD
     Route: 048
     Dates: end: 20160225
  9. FLUIMUCIL [Concomitant]
     Active Substance: ACETYLCYSTEINE
     Dosage: 600 MG, BID
     Route: 048
     Dates: end: 20160225
  10. DIFLUCAN [Concomitant]
     Active Substance: FLUCONAZOLE
     Dosage: 400 MG, OW
     Route: 042
  11. MERONEM [Concomitant]
     Active Substance: MEROPENEM
     Dosage: 2000 MG, TID
     Dates: start: 20170301

REACTIONS (2)
  - Agranulocytosis [Recovered/Resolved]
  - Sepsis [Recovering/Resolving]

NARRATIVE: CASE EVENT DATE: 20170225
